FAERS Safety Report 23313563 (Version 1)
Quarter: 2023Q4

REPORT INFORMATION
  Report Type: Spontaneous
  Country: US (occurrence: US)
  Receive Date: 20231219
  Receipt Date: 20231219
  Transmission Date: 20240109
  Serious: No
  Sender: FDA-Public Use
  Company Number: US-VIIV HEALTHCARE LIMITED-US2023173329

PATIENT
  Sex: Male

DRUGS (11)
  1. DOVATO [Suspect]
     Active Substance: DOLUTEGRAVIR SODIUM\LAMIVUDINE
     Indication: HIV infection
     Dosage: UNK, 50-300 MG
  2. ALBUTEROL [Concomitant]
     Active Substance: ALBUTEROL
     Indication: Product used for unknown indication
     Dosage: UNK (90 BASE)
  3. AMLODIPINE [Concomitant]
     Active Substance: AMLODIPINE BESYLATE
     Indication: Product used for unknown indication
     Dosage: 5 MG
  4. HYDROCHLOROTHIAZIDE\LISINOPRIL [Concomitant]
     Active Substance: HYDROCHLOROTHIAZIDE\LISINOPRIL
     Indication: Product used for unknown indication
     Dosage: UNK (20-25MG)
  5. ROSUVASTATIN [Concomitant]
     Active Substance: ROSUVASTATIN
     Indication: Product used for unknown indication
     Dosage: 10 MG
  6. COVID-19 vaccine [Concomitant]
     Indication: Product used for unknown indication
     Dosage: 0.3 ML (MONOVALENT)
     Dates: start: 20210526
  7. HUMAN HEPATITIS B VIRUS IMMUNE GLOBULIN [Concomitant]
     Active Substance: HUMAN HEPATITIS B VIRUS IMMUNE GLOBULIN
     Indication: Product used for unknown indication
     Dosage: UNK
     Dates: start: 20150918
  8. INFLUENZA VIRUS VACCINE QUADRIVALENT TYPE A+B [Concomitant]
     Active Substance: INFLUENZA VIRUS VACCINE QUADRIVALENT TYPE A+B
     Indication: Product used for unknown indication
     Dosage: UNK
     Dates: start: 20161003
  9. TRIVALENT INFLUENZA VACCINE [Concomitant]
     Indication: Product used for unknown indication
     Dosage: UNK
     Dates: start: 20150918
  10. PNEUMOCOCCAL VACCINE POLYVALENT [Concomitant]
     Active Substance: PNEUMOCOCCAL VACCINE POLYVALENT
     Indication: Product used for unknown indication
     Dosage: UNK
     Dates: start: 20161003
  11. Pneumococcal polysaccharide conjugate vaccine (13-valent, adsorbed) [Concomitant]
     Indication: Product used for unknown indication
     Dosage: UNK
     Dates: start: 20120613

REACTIONS (2)
  - Hypertension [Unknown]
  - Tinea cruris [Unknown]
